FAERS Safety Report 9820172 (Version 1)
Quarter: 2014Q1

REPORT INFORMATION
  Report Type: Spontaneous
  Country: US (occurrence: None)
  Receive Date: 20140113
  Receipt Date: 20140113
  Transmission Date: 20141002
  Serious: Yes (Other)
  Sender: FDA-Public Use
  Company Number: None

PATIENT
  Age: 28 Year
  Sex: Female
  Weight: 113.4 kg

DRUGS (1)
  1. PROACTIV ACNE CLEANSER [Suspect]
     Dates: start: 20140109, end: 20140110

REACTIONS (2)
  - Hypersensitivity [None]
  - Drug ineffective [None]
